FAERS Safety Report 9351408 (Version 1)
Quarter: 2013Q2

REPORT INFORMATION
  Report Type: Spontaneous
  Country: US (occurrence: US)
  Receive Date: 20130617
  Receipt Date: 20130617
  Transmission Date: 20140414
  Serious: No
  Sender: FDA-Public Use
  Company Number: US-UPSHER-SMITH LABORATORIES, INC.-13001777

PATIENT
  Age: 47 Year
  Sex: Female

DRUGS (5)
  1. DIVIGEL [Suspect]
     Indication: ADENOMYOSIS
     Dosage: 0.5 MG, QD
     Route: 061
     Dates: start: 20130513, end: 20130519
  2. DIVIGEL [Suspect]
     Dosage: 1 MG, QD
     Route: 061
     Dates: start: 20130520
  3. AMBIEN [Concomitant]
     Dosage: UNK
  4. CLONAZEPAM [Concomitant]
     Indication: ANXIETY
     Dosage: UNK
  5. OXYCODONE [Concomitant]
     Dosage: UNK

REACTIONS (5)
  - Headache [Not Recovered/Not Resolved]
  - Synovial cyst [Recovering/Resolving]
  - Pain in extremity [Recovering/Resolving]
  - Heart rate increased [Recovered/Resolved]
  - Hyperhidrosis [Recovered/Resolved]
